FAERS Safety Report 24439624 (Version 1)
Quarter: 2024Q4

REPORT INFORMATION
  Report Type: Other
  Country: US (occurrence: US)
  Receive Date: 20241015
  Receipt Date: 20241015
  Transmission Date: 20250114
  Serious: Yes (Other)
  Sender: Meaningful Beauty
  Company Number: 2600491

PATIENT
  Age: 73 Year
  Sex: Female

DRUGS (2)
  1. AVOBENZONE\HOMOSALATE\OCTISALATE\OXYBENZONE [Suspect]
     Active Substance: AVOBENZONE\HOMOSALATE\OCTISALATE\OXYBENZONE
  2. MEANINGFUL BEAUTY CINDY CRAWFORD SKIN BRIGHTENING DECOLLETE AND NECK T [Suspect]
     Active Substance: AVOBENZONE\OCTINOXATE\OCTISALATE\OXYBENZONE

REACTIONS (1)
  - Hypersensitivity [Recovered/Resolved]
